FAERS Safety Report 9354282 (Version 1)
Quarter: 2013Q2

REPORT INFORMATION
  Report Type: Spontaneous
  Country: ES (occurrence: ES)
  Receive Date: 20130618
  Receipt Date: 20130618
  Transmission Date: 20140414
  Serious: Yes (Hospitalization)
  Sender: FDA-Public Use
  Company Number: ES-CELGENEUS-144-21880-13061085

PATIENT
  Age: 68 Year
  Sex: Male

DRUGS (6)
  1. REVLIMID [Suspect]
     Indication: PLASMA CELL MYELOMA
     Dosage: 15 MILLIGRAM
     Route: 048
     Dates: start: 20130312
  2. TEGRETOL [Suspect]
     Indication: NEUROPATHY PERIPHERAL
     Dosage: 600 MILLIGRAM
     Route: 048
     Dates: start: 20130318, end: 20130418
  3. OMEPRAZOLE [Concomitant]
     Indication: PRODUCT USED FOR UNKNOWN INDICATION
     Dosage: 20 MILLIGRAM
     Route: 048
     Dates: start: 20130312
  4. COPALIA [Concomitant]
     Indication: HYPERTENSION
     Dosage: 5/160MG
     Route: 048
     Dates: start: 2013
  5. HIDROXIL [Concomitant]
     Indication: NEURITIS
     Dosage: 1 DOSAGE FORMS
     Route: 048
     Dates: start: 20130313
  6. VALTREX [Concomitant]
     Indication: ANTIVIRAL PROPHYLAXIS
     Dosage: 500 MILLIGRAM
     Route: 048
     Dates: start: 20130313

REACTIONS (4)
  - Gait disturbance [Unknown]
  - Diplopia [Recovered/Resolved]
  - Dizziness [Unknown]
  - Rash [Unknown]
